FAERS Safety Report 15385935 (Version 1)
Quarter: 2018Q3

REPORT INFORMATION
  Report Type: Spontaneous
  Country: US (occurrence: US)
  Receive Date: 20180914
  Receipt Date: 20180914
  Transmission Date: 20181010
  Serious: No
  Sender: FDA-Public Use
  Company Number: US-GLAXOSMITHKLINE-US2018GSK163917

PATIENT
  Sex: Female

DRUGS (1)
  1. CARVEDILOL PHOSPHATE. [Suspect]
     Active Substance: CARVEDILOL PHOSPHATE
     Indication: CARDIAC FAILURE
     Dosage: UNK
     Route: 048
     Dates: start: 2015

REACTIONS (2)
  - Blood pressure decreased [Unknown]
  - Muscular weakness [Unknown]
